FAERS Safety Report 8125032-1 (Version None)
Quarter: 2012Q1

REPORT INFORMATION
  Report Type: 
  Country: None (occurrence: None)
  Receive Date: 20120209
  Receipt Date: 20120127
  Transmission Date: 20120608
  Serious: Yes (Other)
  Sender: FDA-Public Use
  Company Number: US-UCBSA-046834

PATIENT
  Age: 28 Year
  Sex: Male
  Weight: 94.35 kg

DRUGS (2)
  1. VIMPAT [Suspect]
     Indication: EPILEPSY
     Route: 048
     Dates: start: 20111117, end: 20111128
  2. VIMPAT [Suspect]
     Route: 048
     Dates: start: 20111129

REACTIONS (3)
  - TONGUE INJURY [None]
  - CONVULSION [None]
  - GRAND MAL CONVULSION [None]
